FAERS Safety Report 23918888 (Version 1)
Quarter: 2024Q2

REPORT INFORMATION
  Report Type: Spontaneous
  Country: US (occurrence: US)
  Receive Date: 20240530
  Receipt Date: 20240530
  Transmission Date: 20240716
  Serious: No
  Sender: FDA-Public Use
  Company Number: US-002147023-NVSC2024US113280

PATIENT
  Age: 63 Year
  Sex: Female

DRUGS (1)
  1. LEQVIO [Suspect]
     Active Substance: INCLISIRAN SODIUM
     Indication: Low density lipoprotein increased
     Dosage: 284 MG (DAY 1, 3 MONTHS, 9, MONTHS)
     Route: 058
     Dates: start: 20230501

REACTIONS (1)
  - Urinary tract infection [Recovered/Resolved]
